FAERS Safety Report 7994767-3 (Version None)
Quarter: 2011Q4

REPORT INFORMATION
  Report Type: 
  Country: None (occurrence: None)
  Receive Date: 20111220
  Receipt Date: 20111213
  Transmission Date: 20120403
  Serious: Yes (Hospitalization, Other)
  Sender: FDA-Public Use
  Company Number: ES-PFIZER INC-2011301916

PATIENT
  Age: 46 Year
  Sex: Female

DRUGS (6)
  1. SERTRALINE HYDROCHLORIDE [Interacting]
     Dosage: 1 MG, DAILY
     Route: 048
     Dates: start: 20110526, end: 20111003
  2. RISPERDAL [Interacting]
     Indication: SCHIZOPHRENIA
     Dosage: 7 MG, DAILY
     Route: 048
     Dates: start: 20110526
  3. AKINETON [Interacting]
     Dosage: 25 MG, DAILY
     Route: 048
     Dates: start: 20110526, end: 20111007
  4. AMITRIPTYLINE HCL [Interacting]
     Indication: NEUROPATHY PERIPHERAL
     Dosage: 10 MG, DAILY
     Route: 048
     Dates: start: 20110919, end: 20111006
  5. LYRICA [Suspect]
     Indication: NEUROPATHY PERIPHERAL
     Dosage: 150 MG, DAILY
     Route: 048
     Dates: start: 20110919, end: 20111003
  6. DOSTINEX [Concomitant]
     Dosage: 0.5 MG, DAILY
     Route: 048
     Dates: start: 20110526

REACTIONS (2)
  - INAPPROPRIATE ANTIDIURETIC HORMONE SECRETION [None]
  - DRUG INTERACTION [None]
